FAERS Safety Report 13564439 (Version 2)
Quarter: 2017Q2

REPORT INFORMATION
  Report Type: Spontaneous
  Country: AU (occurrence: AU)
  Receive Date: 20170519
  Receipt Date: 20170607
  Transmission Date: 20170830
  Serious: Yes (Other)
  Sender: FDA-Public Use
  Company Number: AU-JNJFOC-20170512479

PATIENT
  Age: 54 Year
  Sex: Male

DRUGS (3)
  1. FLUCYTOSINE. [Suspect]
     Active Substance: FLUCYTOSINE
     Indication: CRYPTOCOCCOSIS
     Dosage: FOR 16 DAYS
     Route: 065
  2. ITRACONAZOLE. [Suspect]
     Active Substance: ITRACONAZOLE
     Indication: CRYPTOCOCCOSIS
     Dosage: WITH AN EXPECTED TREATMENT COURSE OF??12 MONTHS
     Route: 065
  3. AMPHOTERICIN B. [Suspect]
     Active Substance: AMPHOTERICIN B
     Indication: CRYPTOCOCCOSIS
     Dosage: FOR 4 WEEKS
     Route: 042

REACTIONS (3)
  - Acute kidney injury [Recovering/Resolving]
  - Product use in unapproved indication [Unknown]
  - Off label use [Unknown]
